FAERS Safety Report 6602998-X (Version None)
Quarter: 2010Q1

REPORT INFORMATION
  Report Type: 
  Country: None (occurrence: None)
  Receive Date: 20100226
  Receipt Date: 20100217
  Transmission Date: 20100710
  Serious: Yes (Other)
  Sender: FDA-Public Use
  Company Number: US-BAYER-201011903NA

PATIENT
  Age: 38 Year
  Sex: Female
  Weight: 59 kg

DRUGS (8)
  1. MIRENA [Suspect]
     Indication: CONTRACEPTION
     Dosage: CONTINUOUS
     Route: 015
     Dates: start: 20091015
  2. ATENOLOL [Concomitant]
     Indication: HEART RATE IRREGULAR
     Dosage: UNKNOWN DOSAGE
     Dates: start: 20091201
  3. CLONAZEPAM [Concomitant]
     Indication: MIGRAINE
     Route: 048
  4. MAXALT [Concomitant]
     Indication: MIGRAINE
     Route: 048
  5. HYDROCODONE [Concomitant]
     Indication: MIGRAINE
     Route: 048
  6. KETORALC [Concomitant]
     Indication: MIGRAINE
  7. PROMETAZIN [Concomitant]
     Indication: MIGRAINE
     Route: 048
  8. ALEVE (CAPLET) [Concomitant]
     Indication: MIGRAINE
     Route: 048

REACTIONS (1)
  - HEART RATE IRREGULAR [None]
